FAERS Safety Report 25315759 (Version 1)
Quarter: 2025Q2

REPORT INFORMATION
  Report Type: Spontaneous
  Country: AT (occurrence: AT)
  Receive Date: 20250515
  Receipt Date: 20250515
  Transmission Date: 20250717
  Serious: Yes (Hospitalization, Other)
  Sender: CELLTRION
  Company Number: AT-ROCHE-10000127146

PATIENT

DRUGS (11)
  1. INFLIXIMAB [Suspect]
     Active Substance: INFLIXIMAB
     Indication: Takayasu^s arteritis
     Dosage: 5 MG/KG EVERY 4 WEELS
     Route: 065
  2. MYCOPHENOLATE MOFETIL [Suspect]
     Active Substance: MYCOPHENOLATE MOFETIL
     Indication: Takayasu^s arteritis
     Route: 065
  3. PYRIMETHAMINE [Concomitant]
     Active Substance: PYRIMETHAMINE
  4. SULFADIAZINE [Concomitant]
     Active Substance: SULFADIAZINE
  5. LEUCOVORIN [Concomitant]
     Active Substance: LEUCOVORIN\LEUCOVORIN CALCIUM
  6. CEFTRIAXONE [Concomitant]
     Active Substance: CEFTRIAXONE
  7. DEXAMETHASONE [Concomitant]
     Active Substance: DEXAMETHASONE
  8. SULFAMETROLE\TRIMETHOPRIM [Concomitant]
     Active Substance: SULFAMETROLE\TRIMETHOPRIM
  9. PREDNISOLONE [Concomitant]
     Active Substance: PREDNISOLONE
     Route: 048
  10. PREDNISOLONE [Concomitant]
     Active Substance: PREDNISOLONE
  11. LACOSAMIDE [Concomitant]
     Active Substance: LACOSAMIDE

REACTIONS (7)
  - Cerebral toxoplasmosis [Unknown]
  - Toxoplasmosis [Unknown]
  - Abscess [Unknown]
  - Breast cancer [Unknown]
  - Retinitis [Unknown]
  - Cytomegalovirus chorioretinitis [Unknown]
  - Intentional product use issue [Unknown]
